FAERS Safety Report 7245357-1 (Version None)
Quarter: 2011Q1

REPORT INFORMATION
  Report Type: 
  Country: None (occurrence: None)
  Receive Date: 20110126
  Receipt Date: 20100122
  Transmission Date: 20110831
  Serious: Yes (Hospitalization)
  Sender: FDA-Public Use
  Company Number: FR-PFIZER INC-2010009760

PATIENT
  Sex: Female

DRUGS (2)
  1. EFFEXOR [Suspect]
     Dosage: 37.5 MG, 2X/DAY, 1 TABLET IN THE MORNING AND 1 TABLET AT NIGHT
     Route: 048
     Dates: start: 20091102, end: 20091103
  2. ATARAX [Suspect]
     Dosage: 25 MG, AT NIGHT
     Route: 048
     Dates: start: 20091102, end: 20091103

REACTIONS (2)
  - DYSARTHRIA [None]
  - MYOCLONUS [None]
